FAERS Safety Report 4871114-7 (Version None)
Quarter: 2005Q4

REPORT INFORMATION
  Report Type: 
  Country: None (occurrence: None)
  Receive Date: 20051115
  Receipt Date: 20050720
  Transmission Date: 20060501
  Serious: Yes (Other)
  Sender: FDA-Public Use
  Company Number: 403975

PATIENT
  Age: 39 Year
  Sex: Male

DRUGS (6)
  1. PEGASYS [Suspect]
     Indication: HEPATITIS C VIRUS
     Dosage: 180 MCG 1 PER WEEK SUBCUTANEOUS
     Route: 058
     Dates: start: 20050303
  2. COPEGUS [Suspect]
     Indication: HEPATITIS C VIRUS
     Dosage: 600 MG 2 PER DAY ORAL
     Route: 048
     Dates: start: 20050303
  3. PROTONIX [Concomitant]
  4. FLEXERIL [Concomitant]
  5. CARTIA XT [Concomitant]
  6. IRON, TABLETS (IRON NOS) [Concomitant]

REACTIONS (6)
  - FATIGUE [None]
  - HAEMOGLOBIN DECREASED [None]
  - INFLUENZA LIKE ILLNESS [None]
  - MYALGIA [None]
  - SINUSITIS [None]
  - WHITE BLOOD CELL COUNT DECREASED [None]
